FAERS Safety Report 7735686-7 (Version None)
Quarter: 2011Q3

REPORT INFORMATION
  Report Type: 
  Country: None (occurrence: None)
  Receive Date: 20110907
  Receipt Date: 20110824
  Transmission Date: 20111222
  Serious: Yes (Other)
  Sender: FDA-Public Use
  Company Number: GB-MYLANLABS-2011S1018064

PATIENT
  Sex: Female

DRUGS (1)
  1. TAMOXIFEN CITRATE [Suspect]
     Indication: BREAST CANCER

REACTIONS (5)
  - FATIGUE [None]
  - AMENORRHOEA [None]
  - VULVOVAGINAL DRYNESS [None]
  - HYPOTHYROIDISM [None]
  - DYSPNOEA [None]
